FAERS Safety Report 26076609 (Version 1)
Quarter: 2025Q4

REPORT INFORMATION
  Report Type: Report from Study
  Country: US (occurrence: US)
  Receive Date: 20251121
  Receipt Date: 20251121
  Transmission Date: 20260117
  Serious: Yes (Other)
  Sender: MALLINCKRODT
  Company Number: US-MALLINCKRODT-MNK202507104

PATIENT
  Sex: Female

DRUGS (2)
  1. CORTICOTROPIN [Suspect]
     Active Substance: CORTICOTROPIN
     Indication: Dermatomyositis
     Dosage: UNKNOWN
  2. CORTICOTROPIN [Suspect]
     Active Substance: CORTICOTROPIN
     Indication: Dermatomyositis

REACTIONS (7)
  - Scleroderma [Unknown]
  - Cataract operation [Unknown]
  - Blood pressure increased [Unknown]
  - Stress [Unknown]
  - Gait disturbance [Unknown]
  - Sensitivity to weather change [Unknown]
  - Injection site bruising [Unknown]
